FAERS Safety Report 6860388-9 (Version None)
Quarter: 2010Q3

REPORT INFORMATION
  Report Type: 
  Country: None (occurrence: None)
  Receive Date: 20100720
  Receipt Date: 20100709
  Transmission Date: 20110219
  Serious: Yes (Death, Hospitalization)
  Sender: FDA-Public Use
  Company Number: TH-ROCHE-702659

PATIENT
  Age: 19 Year
  Sex: Male

DRUGS (1)
  1. OSELTAMIVIR [Suspect]
     Indication: AVIAN INFLUENZA
     Route: 065
     Dates: start: 20060724, end: 20060724

REACTIONS (1)
  - RESPIRATORY FAILURE [None]
